FAERS Safety Report 17856177 (Version 3)
Quarter: 2020Q3

REPORT INFORMATION
  Report Type: Spontaneous
  Country: ES (occurrence: ES)
  Receive Date: 20200603
  Receipt Date: 20200710
  Transmission Date: 20201103
  Serious: Yes (Other)
  Sender: FDA-Public Use
  Company Number: ES-AMGEN-ESPSP2020087091

PATIENT
  Age: 76 Year
  Sex: Female

DRUGS (1)
  1. ARANESP [Suspect]
     Active Substance: DARBEPOETIN ALFA
     Indication: PRODUCT USED FOR UNKNOWN INDICATION
     Dosage: UNK, QWK
     Route: 065
     Dates: start: 2020, end: 2020

REACTIONS (4)
  - Blister [Not Recovered/Not Resolved]
  - Diabetes mellitus [Unknown]
  - Renal failure [Unknown]
  - Swelling face [Unknown]

NARRATIVE: CASE EVENT DATE: 2020
